FAERS Safety Report 21147416 (Version 2)
Quarter: 2022Q3

REPORT INFORMATION
  Report Type: Spontaneous
  Country: CO (occurrence: CO)
  Receive Date: 20220729
  Receipt Date: 20220920
  Transmission Date: 20221026
  Serious: No
  Sender: FDA-Public Use
  Company Number: CO-PFIZER INC-PV202200023131

PATIENT

DRUGS (1)
  1. GENOTROPIN [Suspect]
     Active Substance: SOMATROPIN
     Dosage: 2 MG, UNSPECIFIED FRECUENCY
     Route: 058

REACTIONS (4)
  - Drug dose omission by device [Unknown]
  - Dose calculation error [Unknown]
  - Device failure [Unknown]
  - Device information output issue [Unknown]
